FAERS Safety Report 8671844 (Version 4)
Quarter: 2013Q4

REPORT INFORMATION
  Report Type: Spontaneous
  Country: US (occurrence: US)
  Receive Date: 20120718
  Receipt Date: 20131106
  Transmission Date: 20140711
  Serious: Yes (Life-Threatening, Hospitalization)
  Sender: FDA-Public Use
  Company Number: US-009507513-1207USA003493

PATIENT
  Age: 49 Year
  Sex: Male
  Weight: 81.88 kg

DRUGS (17)
  1. VICTRELIS [Suspect]
     Indication: HEPATITIS C
     Dosage: 200 MG 4 CAPSULES THREE TIMES A DAY
     Route: 048
     Dates: start: 20120319, end: 20130316
  2. PEG-INTRON [Suspect]
     Indication: HEPATITIS C
     Dosage: 80 MICROGRAM, QW
     Route: 058
     Dates: start: 20120319, end: 20130309
  3. REBETOL [Suspect]
     Indication: HEPATITIS C
     Dosage: 200 MG, BID
     Route: 048
     Dates: start: 20120319, end: 20130216
  4. REBETOL [Suspect]
     Dosage: UNK
  5. NEURONTIN [Concomitant]
     Dosage: 800 MG, TID
  6. NEURONTIN [Concomitant]
     Dosage: 800 MG, BID
  7. BENADRYL [Concomitant]
     Dosage: 25 MG, PRN
  8. HYDROCODONE [Concomitant]
     Dosage: 10 MG, PRN
  9. HYDROCODONE [Concomitant]
     Dosage: 10 MG, TID
  10. MORPHINE [Concomitant]
     Dosage: 30 MG, TID
  11. TRAZODONE HYDROCHLORIDE [Concomitant]
     Dosage: 50-100 MG AT BEDTIME
  12. ZOFRAN [Concomitant]
     Dosage: 4 MG, PRN
     Dates: start: 201204, end: 20130403
  13. PAXIL [Concomitant]
     Dosage: 20 MG, HS
     Dates: start: 201204
  14. ALBUTEROL [Concomitant]
     Dosage: UNK, PRN
  15. SOMA [Concomitant]
     Dosage: 350 MG, HS
     Dates: start: 201209
  16. CHANTIX [Concomitant]
     Dosage: 0.5 MG, BID
  17. RANITIDINE [Concomitant]
     Dosage: 150 MG, BID
     Dates: start: 20121031

REACTIONS (30)
  - Pneumonia [Recovered/Resolved]
  - Hepatic cirrhosis [Unknown]
  - Leukopenia [Unknown]
  - Neutropenia [Unknown]
  - Haemolytic anaemia [Recovering/Resolving]
  - Thrombocytopenia [Unknown]
  - Fatigue [Unknown]
  - Insomnia [Unknown]
  - Night sweats [Unknown]
  - Decreased appetite [Unknown]
  - Dizziness [Unknown]
  - Nasal congestion [Unknown]
  - Rhinorrhoea [Unknown]
  - Dry mouth [Unknown]
  - Dyspepsia [Unknown]
  - Dyspepsia [Unknown]
  - Dysuria [Unknown]
  - Myalgia [Unknown]
  - Arthralgia [Unknown]
  - Joint stiffness [Unknown]
  - Asthenia [Unknown]
  - Balance disorder [Unknown]
  - Somnolence [Unknown]
  - Disturbance in attention [Unknown]
  - Memory impairment [Unknown]
  - Thirst [Unknown]
  - Hyperhidrosis [Unknown]
  - Depressed mood [Unknown]
  - Mood swings [Unknown]
  - Chronic obstructive pulmonary disease [Unknown]
